FAERS Safety Report 18240506 (Version 1)
Quarter: 2020Q3

REPORT INFORMATION
  Report Type: Spontaneous
  Country: US (occurrence: US)
  Receive Date: 20200908
  Receipt Date: 20200908
  Transmission Date: 20201103
  Serious: No
  Sender: FDA-Public Use
  Company Number: US-ASTRAZENECA-2020SF04679

PATIENT
  Sex: Male

DRUGS (1)
  1. BYETTA [Suspect]
     Active Substance: EXENATIDE
     Dosage: 2.4ML UNKNOWN
     Route: 058
     Dates: start: 20200813

REACTIONS (6)
  - Injection site pain [Unknown]
  - Pallor [Unknown]
  - Intentional device misuse [Unknown]
  - Malaise [Unknown]
  - Blood glucose abnormal [Unknown]
  - Intentional product misuse [Unknown]
